FAERS Safety Report 9080646 (Version 1)
Quarter: 2013Q1

REPORT INFORMATION
  Report Type: Spontaneous
  Country: US (occurrence: US)
  Receive Date: 20130130
  Receipt Date: 20130130
  Transmission Date: 20140127
  Serious: No
  Sender: FDA-Public Use
  Company Number: US-ABBOTT-12P-163-0969895-00

PATIENT
  Sex: 0

DRUGS (4)
  1. HUMIRA 40 MG/ 0.8 ML PRE-FILLED SYRINGE [Suspect]
     Indication: PRODUCT USED FOR UNKNOWN INDICATION
  2. ASOCOL [Concomitant]
     Indication: CROHN^S DISEASE
  3. CORDRAN TAPE [Concomitant]
     Indication: PUSTULAR PSORIASIS
  4. CLOBETISOL [Concomitant]
     Indication: PUSTULAR PSORIASIS

REACTIONS (2)
  - Psoriasis [Unknown]
  - Crohn^s disease [Unknown]
